FAERS Safety Report 10170537 (Version 2)
Quarter: 2014Q2

REPORT INFORMATION
  Report Type: Spontaneous
  Country: US (occurrence: US)
  Receive Date: 20140513
  Receipt Date: 20140523
  Transmission Date: 20141212
  Serious: Yes (Other)
  Sender: FDA-Public Use
  Company Number: ALCN2014US002813

PATIENT
  Age: 65 Year
  Sex: Male

DRUGS (1)
  1. SYSTANE [Suspect]
     Dosage: 1 GTT, PRN
     Route: 047

REACTIONS (3)
  - Corneal abrasion [Recovered/Resolved]
  - Visual acuity reduced [Not Recovered/Not Resolved]
  - Product dropper issue [Recovered/Resolved]
